FAERS Safety Report 13264874 (Version 1)
Quarter: 2017Q1

REPORT INFORMATION
  Report Type: Spontaneous
  Country: DE (occurrence: DE)
  Receive Date: 20170223
  Receipt Date: 20170223
  Transmission Date: 20170428
  Serious: Yes (Other)
  Sender: FDA-Public Use
  Company Number: DE-BRISTOL-MYERS SQUIBB COMPANY-BMS-2017-012244

PATIENT
  Age: 68 Year
  Sex: Female

DRUGS (1)
  1. COUMADIN [Suspect]
     Active Substance: WARFARIN SODIUM
     Indication: THROMBOSIS
     Dosage: UNK
     Route: 065
     Dates: start: 1998

REACTIONS (4)
  - Treatment noncompliance [Unknown]
  - Dental operation [Unknown]
  - Hordeolum [Unknown]
  - Eye operation [Unknown]

NARRATIVE: CASE EVENT DATE: 20170210
